FAERS Safety Report 17039243 (Version 1)
Quarter: 2019Q4

REPORT INFORMATION
  Report Type: Spontaneous
  Country: US (occurrence: US)
  Receive Date: 20191115
  Receipt Date: 20191115
  Transmission Date: 20200122
  Serious: No
  Sender: FDA-Public Use
  Company Number: US-SA-2019SA311991

PATIENT
  Age: 61 Year
  Sex: Female

DRUGS (7)
  1. PANTOPRAZOLE [Concomitant]
     Active Substance: PANTOPRAZOLE
  2. CHANTIX [Concomitant]
     Active Substance: VARENICLINE TARTRATE
  3. BUPROPION. [Concomitant]
     Active Substance: BUPROPION
  4. PRAVASTATIN. [Concomitant]
     Active Substance: PRAVASTATIN
  5. DUPIXENT [Suspect]
     Active Substance: DUPILUMAB
     Indication: DERMATITIS ALLERGIC
     Dosage: 300 MG, QOW
     Route: 058
     Dates: start: 20190927
  6. FLUTICASONE. [Concomitant]
     Active Substance: FLUTICASONE
  7. PAROXETINE. [Concomitant]
     Active Substance: PAROXETINE

REACTIONS (1)
  - Urinary tract infection [Recovered/Resolved]

NARRATIVE: CASE EVENT DATE: 20191009
